FAERS Safety Report 12867180 (Version 1)
Quarter: 2016Q4

REPORT INFORMATION
  Report Type: Spontaneous
  Country: US (occurrence: US)
  Receive Date: 20161020
  Receipt Date: 20161020
  Transmission Date: 20170207
  Serious: No
  Sender: FDA-Public Use
  Company Number: US-JAZZ-2016-US-014807

PATIENT
  Sex: Female

DRUGS (13)
  1. XYREM [Suspect]
     Active Substance: SODIUM OXYBATE
     Dosage: 4.5 G, BID
     Route: 048
     Dates: start: 200809
  2. FENTANYL. [Concomitant]
     Active Substance: FENTANYL
  3. KADIAN [Concomitant]
     Active Substance: MORPHINE SULFATE
  4. CYMBALTA [Concomitant]
     Active Substance: DULOXETINE HYDROCHLORIDE
  5. PROVIGIL [Concomitant]
     Active Substance: MODAFINIL
  6. CADUET [Concomitant]
     Active Substance: AMLODIPINE BESYLATE\ATORVASTATIN CALCIUM
  7. LORAZEPAM. [Concomitant]
     Active Substance: LORAZEPAM
  8. XYREM [Suspect]
     Active Substance: SODIUM OXYBATE
     Indication: SLEEP DISORDER
     Dosage: 4.5 G, BID
     Route: 048
     Dates: start: 200510, end: 200605
  9. MOBIC [Concomitant]
     Active Substance: MELOXICAM
  10. NUVIGIL [Concomitant]
     Active Substance: ARMODAFINIL
  11. MORPHINE SULFATE CR [Concomitant]
     Active Substance: MORPHINE SULFATE
  12. XYREM [Suspect]
     Active Substance: SODIUM OXYBATE
     Dosage: DOSE ADJUSTMENTS
     Route: 048
     Dates: start: 200605, end: 200809
  13. BENADRYL ALLERGY [Concomitant]
     Active Substance: DIPHENHYDRAMINE HYDROCHLORIDE

REACTIONS (3)
  - Nasopharyngitis [Unknown]
  - Irritability [Unknown]
  - Fatigue [Unknown]
